FAERS Safety Report 6314000-8 (Version None)
Quarter: 2009Q3

REPORT INFORMATION
  Report Type: 
  Country: None (occurrence: None)
  Receive Date: 20090818
  Receipt Date: 20090813
  Transmission Date: 20100115
  Serious: Yes (Other)
  Sender: FDA-Public Use
  Company Number: BR-WYE-H10594109

PATIENT
  Sex: Male

DRUGS (11)
  1. TAZOCIN [Suspect]
     Indication: RESPIRATORY FAILURE
     Dosage: UNKNOWN
     Dates: start: 20090101, end: 20090101
  2. MEROPENEM [Concomitant]
     Dosage: UNKNOWN
  3. FLUCONAZOLE [Concomitant]
     Dosage: UNKNOWN
  4. LEVOFLOXACIN [Concomitant]
     Dosage: UNKNOWN
  5. IMMUNOGLOBULINS [Concomitant]
     Dosage: UNKNOWN
  6. IMIPENEM [Concomitant]
     Dosage: UNKNOWN
  7. CLARITHROMYCIN [Concomitant]
     Dosage: UNKNOWN
  8. CEFTRIAXONE SODIUM [Concomitant]
     Dosage: UNKNOWN
  9. CORTISONE [Concomitant]
     Dosage: UNKNOWN
  10. VANCOMYCIN [Concomitant]
     Dosage: UNKNOWN
  11. OSELTAMIVIR [Concomitant]
     Dosage: UNKNOWN

REACTIONS (2)
  - DRUG INEFFECTIVE [None]
  - PNEUMONIA [None]
